FAERS Safety Report 9708074 (Version 1)
Quarter: 2013Q4

REPORT INFORMATION
  Report Type: Spontaneous
  Country: US (occurrence: None)
  Receive Date: 20131122
  Receipt Date: 20131122
  Transmission Date: 20140711
  Serious: Yes (Disabling, Other)
  Sender: FDA-Public Use
  Company Number: None

PATIENT
  Age: 55 Year
  Sex: Female
  Weight: 54.43 kg

DRUGS (3)
  1. PURITY FIRST VITAMIN B50 [Suspect]
     Indication: SLEEP DISORDER
     Dosage: 6 ONCE DAILY TAKEN BY MOUTH
     Route: 048
     Dates: start: 20121003, end: 20131113
  2. PURITY FIRST VITAMIN B50 [Suspect]
     Indication: ANXIETY
     Dosage: 6 ONCE DAILY TAKEN BY MOUTH
     Route: 048
     Dates: start: 20121003, end: 20131113
  3. VITAMINS WITH MINERALS [Suspect]
     Route: 048
     Dates: start: 20121003, end: 20131113

REACTIONS (10)
  - Dysphonia [None]
  - Vulvovaginal swelling [None]
  - Hair growth abnormal [None]
  - Hyperhidrosis [None]
  - Headache [None]
  - Fatigue [None]
  - Acne [None]
  - Alopecia [None]
  - Onychoclasis [None]
  - Local swelling [None]
